FAERS Safety Report 21527667 (Version 2)
Quarter: 2022Q4

REPORT INFORMATION
  Report Type: Other
  Country: KZ (occurrence: KZ)
  Receive Date: 20221031
  Receipt Date: 20221206
  Transmission Date: 20230112
  Serious: Yes (Other)
  Sender: FDA-Public Use
  Company Number: KZ-MACLEODS PHARMA EU LTD-MAC2022038052

PATIENT

DRUGS (9)
  1. PYRAZINAMIDE [Suspect]
     Active Substance: PYRAZINAMIDE
     Indication: Pulmonary tuberculosis
     Dosage: 1000 MILLIGRAM
     Route: 065
     Dates: start: 20220225
  2. Levozin [Concomitant]
     Indication: Product used for unknown indication
     Dosage: UNK ( NOBEL ALMATY PHARMACEUTICAL FACTORY)
     Route: 065
  3. CYCLOSERINE [Concomitant]
     Active Substance: CYCLOSERINE
     Indication: Product used for unknown indication
     Dosage: UNK (ABDI IBRAHIM GLOBAL PHARM),CYCLOSERINE (CS)-500
     Route: 065
     Dates: start: 20220225
  4. Deltiba [Concomitant]
     Indication: Product used for unknown indication
     Dosage: 100 MILLIGRAM, BID
     Route: 065
  5. LINEZOLID [Concomitant]
     Active Substance: LINEZOLID
     Indication: Product used for unknown indication
     Dosage: 600 MILLIGRAM, ( NEEL-NAYAN PHARMA.INDIA)
     Route: 065
     Dates: start: 20220225
  6. Kombutol [Concomitant]
     Indication: Product used for unknown indication
     Dosage: 800 MILLIGRAM,(CONCEPT PHARMACEUTICALS LIMITED; INDIA)
     Route: 065
     Dates: start: 20220225
  7. LEVOFLOXACIN [Concomitant]
     Active Substance: LEVOFLOXACIN
     Indication: Product used for unknown indication
     Dosage: 750 MILLIGRAM
     Route: 065
     Dates: start: 20220225
  8. BEDAQUILINE [Concomitant]
     Active Substance: BEDAQUILINE
     Indication: Product used for unknown indication
     Dosage: 4 DOSAGE FORM, QD (400 MG)
     Route: 065
     Dates: start: 20220225
  9. BEDAQUILINE [Concomitant]
     Active Substance: BEDAQUILINE
     Dosage: 200 MILLIGRAM, T.I.W.

REACTIONS (2)
  - Hepatitis toxic [Recovering/Resolving]
  - Arthralgia [Recovering/Resolving]

NARRATIVE: CASE EVENT DATE: 20220425
